FAERS Safety Report 7754373-2 (Version None)
Quarter: 2011Q3

REPORT INFORMATION
  Report Type: 
  Country: None (occurrence: None)
  Receive Date: 20110915
  Receipt Date: 20110908
  Transmission Date: 20111222
  Serious: Yes (Other)
  Sender: FDA-Public Use
  Company Number: US-US-EMD SERONO, INC.-7082195

PATIENT
  Sex: Female

DRUGS (2)
  1. REBIF [Suspect]
     Indication: SECONDARY PROGRESSIVE MULTIPLE SCLEROSIS
     Route: 058
     Dates: start: 20030103
  2. AMINOPYRIDINE [Concomitant]
     Dates: start: 20110801, end: 20110901

REACTIONS (3)
  - APHASIA [None]
  - CONTUSION [None]
  - MUSCULAR WEAKNESS [None]
